FAERS Safety Report 6060817-7 (Version None)
Quarter: 2009Q1

REPORT INFORMATION
  Report Type: 
  Country: None (occurrence: None)
  Receive Date: 20090130
  Receipt Date: 20090130
  Transmission Date: 20090719
  Serious: Yes (Hospitalization)
  Sender: FDA-Public Use
  Company Number: None

PATIENT
  Sex: Male
  Weight: 90.7194 kg

DRUGS (1)
  1. MINOCYCLINE [Suspect]
     Indication: ROSACEA
     Dosage: 100 MG BID PO
     Route: 048
     Dates: start: 20080801, end: 20080815

REACTIONS (8)
  - ANOREXIA [None]
  - COUGH [None]
  - DYSPNOEA [None]
  - HYPERSENSITIVITY [None]
  - INTERSTITIAL LUNG DISEASE [None]
  - LUNG DISORDER [None]
  - NIGHT SWEATS [None]
  - PYREXIA [None]
